FAERS Safety Report 21219848 (Version 1)
Quarter: 2022Q3

REPORT INFORMATION
  Report Type: Spontaneous
  Country: FR (occurrence: FR)
  Receive Date: 20220817
  Receipt Date: 20220817
  Transmission Date: 20221027
  Serious: Yes (Hospitalization, Other)
  Sender: FDA-Public Use
  Company Number: FR-STADA-254894

PATIENT
  Age: 67 Year
  Sex: Female

DRUGS (13)
  1. PREDNISONE [Suspect]
     Active Substance: PREDNISONE
     Indication: Follicular lymphoma stage IV
     Dosage: UNK (RECEIVED 6 CYCLES; AS PART OF R-CHOP REGIMEN)
     Route: 065
  2. CYCLOPHOSPHAMIDE [Suspect]
     Active Substance: CYCLOPHOSPHAMIDE
     Indication: Follicular lymphoma stage IV
     Dosage: UNK (RECEIVED 6 CYCLES; PART OF R-CHOP)
     Route: 065
  3. DEXAMETHASONE [Suspect]
     Active Substance: DEXAMETHASONE
     Indication: Follicular lymphoma stage IV
     Dosage: UNK (RECEIVED FOUR CYCLES; PART OF R-DHAC REGIMEN)
     Route: 065
  4. RITUXIMAB [Suspect]
     Active Substance: RITUXIMAB
     Indication: Follicular lymphoma stage IV
     Dosage: UNK (AS PART OF R-CHOP; R-DHAC REGIMEN AND ALONG WITH LENALIDOMIDE)
     Route: 065
  5. VINCRISTINE [Suspect]
     Active Substance: VINCRISTINE
     Indication: Follicular lymphoma stage IV
     Dosage: UNK (RECEIVED 6 CYCLES; AS PART OF R-CHOP REGIMEN)
     Route: 065
  6. BENDAMUSTINE [Concomitant]
     Active Substance: BENDAMUSTINE
     Indication: Follicular lymphoma stage IV
     Dosage: UNK (RECEIVED 6 CYCLES)
     Route: 065
  7. CARBOPLATIN [Concomitant]
     Active Substance: CARBOPLATIN
     Indication: Follicular lymphoma stage IV
     Dosage: UNK (RECEIVED 4 CYCLES; AS PART OF R-DHAC REGIMEN)
     Route: 065
  8. CYTARABINE [Concomitant]
     Active Substance: CYTARABINE
     Indication: Follicular lymphoma stage IV
     Dosage: UNK (RECEIVED 4 CYCLES; AS PART OF R-DHAC REGIMEN)
     Route: 065
  9. DOXORUBICIN [Concomitant]
     Active Substance: DOXORUBICIN
     Indication: Follicular lymphoma stage IV
     Dosage: UNK (RECEIVED 6 CYCLES; PART OF R-CHOP)
     Route: 065
  10. ERYTHROPOIETIN [Concomitant]
     Active Substance: ERYTHROPOIETIN
     Indication: Anaemia
     Dosage: UNK
     Route: 065
  11. IDELALISIB [Concomitant]
     Active Substance: IDELALISIB
     Indication: Follicular lymphoma stage IV
     Dosage: UNK
     Route: 065
  12. OBINUTUZUMAB [Concomitant]
     Active Substance: OBINUTUZUMAB
     Indication: Follicular lymphoma stage IV
     Dosage: UNK (RECEIVED 6CYCLES)
     Route: 065
  13. REVLIMID [Concomitant]
     Active Substance: LENALIDOMIDE
     Indication: Follicular lymphoma stage IV
     Dosage: UNK (RECEIVED 5 CYCLES)
     Route: 065

REACTIONS (2)
  - Borrelia infection [Recovering/Resolving]
  - Drug ineffective [Unknown]
